FAERS Safety Report 6278425-1 (Version None)
Quarter: 2009Q3

REPORT INFORMATION
  Report Type: 
  Country: None (occurrence: None)
  Receive Date: 20090722
  Receipt Date: 20090713
  Transmission Date: 20100115
  Serious: Yes (Life-Threatening, Hospitalization)
  Sender: FDA-Public Use
  Company Number: US-ABBOTT-08P-163-0442836-00

PATIENT
  Sex: Female
  Weight: 48.578 kg

DRUGS (18)
  1. HUMIRA [Suspect]
     Indication: PSORIASIS
     Route: 058
     Dates: start: 20050817, end: 20080227
  2. CORTICOSTEROIDS [Concomitant]
     Indication: PSORIASIS
  3. BACTRIM DS [Concomitant]
     Indication: BRONCHITIS
     Dates: start: 20070108, end: 20070117
  4. BACTRIM DS [Concomitant]
     Dates: start: 20071213, end: 20080101
  5. FLUTICASONE [Concomitant]
     Indication: NASAL CONGESTION
     Dates: start: 20070108, end: 20070117
  6. ALBUTEROL [Concomitant]
     Indication: BRONCHITIS
     Dates: start: 20070108, end: 20070117
  7. BENZONATATE [Concomitant]
     Indication: COUGH
     Dates: start: 20070108, end: 20070117
  8. TYLENOL (CAPLET) [Concomitant]
     Indication: MYALGIA
     Dates: start: 20070108, end: 20070117
  9. NADOLOL [Concomitant]
     Indication: HYPERTENSION
     Dates: start: 19940101
  10. NADOLOL [Concomitant]
  11. FLUOCINOMIDE [Concomitant]
     Indication: PRURITUS
     Dosage: 60 GR AND .01%
     Dates: start: 20050518
  12. DIOVAN [Concomitant]
     Indication: HYPERTENSION
     Dates: start: 19940101
  13. TRICOR [Concomitant]
     Indication: HYPERCHOLESTEROLAEMIA
     Dates: start: 19940101
  14. ANTIHISTAMINE OTC [Concomitant]
     Indication: HYPERSENSITIVITY
     Dates: start: 19950101
  15. HYDROXYZINE HYDROCHLORIDE [Concomitant]
     Indication: PRURITUS
     Dates: start: 20030104
  16. ASPIRIN [Concomitant]
     Indication: ANGINA PECTORIS
     Dates: start: 20051001
  17. LOVAZA [Concomitant]
     Indication: BLOOD TRIGLYCERIDES INCREASED
     Dates: start: 20060218
  18. LACTULOSE [Concomitant]
     Indication: HEPATIC CONGESTION
     Dates: start: 20080201, end: 20080201

REACTIONS (2)
  - CARDIAC FAILURE CONGESTIVE [None]
  - SUPRAVENTRICULAR TACHYCARDIA [None]
